FAERS Safety Report 8713402 (Version 4)
Quarter: 2013Q1

REPORT INFORMATION
  Report Type: Spontaneous
  Country: US (occurrence: US)
  Receive Date: 20120808
  Receipt Date: 20130228
  Transmission Date: 20140127
  Serious: Yes (Hospitalization)
  Sender: FDA-Public Use
  Company Number: US-GLAXOSMITHKLINE-A0988542A

PATIENT
  Age: 38 Year
  Sex: Male
  Weight: 89.8 kg

DRUGS (1)
  1. AVANDAMET [Suspect]
     Indication: DIABETES MELLITUS
     Dosage: 8MG PER DAY
     Route: 048
     Dates: start: 200907, end: 201002

REACTIONS (3)
  - Myocardial infarction [Recovering/Resolving]
  - Coronary artery disease [Unknown]
  - Dyslipidaemia [Unknown]
